FAERS Safety Report 7863738-X (Version None)
Quarter: 2011Q4

REPORT INFORMATION
  Report Type: 
  Country: None (occurrence: None)
  Receive Date: 20111027
  Receipt Date: 20111021
  Transmission Date: 20120403
  Serious: Yes (Other)
  Sender: FDA-Public Use
  Company Number: US-AMGEN-USASP2011046556

PATIENT
  Age: 65 Year
  Sex: Female
  Weight: 46.259 kg

DRUGS (1)
  1. ENBREL [Suspect]
     Indication: RHEUMATOID ARTHRITIS
     Dosage: 25 MG, 2 TIMES/WK
     Dates: start: 20040430

REACTIONS (3)
  - DEAFNESS TRANSITORY [None]
  - DYSACUSIS [None]
  - TINNITUS [None]
